FAERS Safety Report 8343078-5 (Version None)
Quarter: 2012Q2

REPORT INFORMATION
  Report Type: 
  Country: None (occurrence: None)
  Receive Date: 20120508
  Receipt Date: 20120424
  Transmission Date: 20120825
  Serious: Yes (Death, Hospitalization, Other)
  Sender: FDA-Public Use
  Company Number: US-MYLANLABS-2009AC000377

PATIENT
  Age: 81 Year
  Sex: Female

DRUGS (30)
  1. REGLAN [Concomitant]
  2. ALLEGRA [Concomitant]
  3. FLAGYL [Concomitant]
  4. METOLAZONE [Concomitant]
  5. COREG [Concomitant]
  6. GLUCOPHAGE [Concomitant]
  7. LEVAQUIN [Concomitant]
  8. PENICILLIN [Concomitant]
  9. ZAROXOLYN [Concomitant]
  10. PROTONIX [Concomitant]
  11. ENALAPRIL MALEATE [Concomitant]
  12. MILK OF MAGNESIA TAB [Concomitant]
  13. ENDOCIN [Concomitant]
  14. ALPRAZOLAM [Concomitant]
  15. PRILOSEC [Concomitant]
  16. GLIPIZIDE [Concomitant]
  17. XANAX [Concomitant]
  18. LASIX [Concomitant]
  19. GLUCOTROL [Concomitant]
  20. FUROSEMIDE [Concomitant]
  21. DIGOXIN [Suspect]
     Indication: HEART RATE IRREGULAR
     Route: 048
     Dates: start: 20020720, end: 20070913
  22. METOCLOPRAMIDE [Concomitant]
  23. ZYLOPRIM [Concomitant]
  24. COUMADIN [Concomitant]
  25. POTASSIUM CHLORIDE [Concomitant]
  26. VIGAMOX [Concomitant]
  27. ALLOPURINOL [Concomitant]
  28. VASOTEC [Concomitant]
  29. MAGNESIUM HYDROXIDE TAB [Concomitant]
  30. MURO-128 [Concomitant]

REACTIONS (74)
  - BRADYCARDIA [None]
  - ANAEMIA [None]
  - FLATULENCE [None]
  - DEVICE MALFUNCTION [None]
  - ASTHENIA [None]
  - MITRAL VALVE REPLACEMENT [None]
  - HYPERTENSION [None]
  - DIZZINESS [None]
  - ABDOMINAL DISCOMFORT [None]
  - LYMPH NODE PALPABLE [None]
  - BREATH SOUNDS ABNORMAL [None]
  - BLOOD POTASSIUM ABNORMAL [None]
  - EMOTIONAL DISTRESS [None]
  - NAUSEA [None]
  - DYSPNOEA [None]
  - DIARRHOEA [None]
  - OEDEMA [None]
  - PALPITATIONS [None]
  - ATELECTASIS [None]
  - CARDIAC FAILURE CONGESTIVE [None]
  - CARDIOMEGALY [None]
  - STERNOTOMY [None]
  - HYPERLIPIDAEMIA [None]
  - SEBACEOUS CYST EXCISION [None]
  - INTERVERTEBRAL DISC DEGENERATION [None]
  - DEEP VEIN THROMBOSIS [None]
  - MYOCLONUS [None]
  - DIABETES MELLITUS [None]
  - PYREXIA [None]
  - FATIGUE [None]
  - SPLENIC HAEMORRHAGE [None]
  - SYNCOPE [None]
  - FIBRIN D DIMER INCREASED [None]
  - DYSURIA [None]
  - BLOOD UREA ABNORMAL [None]
  - BLOOD CREATININE ABNORMAL [None]
  - AORTIC VALVE REPLACEMENT [None]
  - CAROTID ARTERY STENOSIS [None]
  - PERIPHERAL VASCULAR DISORDER [None]
  - ABDOMINAL PAIN [None]
  - SPLENOMEGALY [None]
  - ATRIAL FIBRILLATION [None]
  - RALES [None]
  - MITRAL VALVE INCOMPETENCE [None]
  - TOXICITY TO VARIOUS AGENTS [None]
  - GASTROINTESTINAL HAEMORRHAGE [None]
  - DIVERTICULUM [None]
  - GASTRITIS [None]
  - FAECES DISCOLOURED [None]
  - CHEST DISCOMFORT [None]
  - PAIN [None]
  - ECONOMIC PROBLEM [None]
  - DEATH [None]
  - HYPOTENSION [None]
  - ABDOMINAL DISTENSION [None]
  - PLEURAL EFFUSION [None]
  - DIVERTICULITIS [None]
  - FALL [None]
  - MUSCULOSKELETAL PAIN [None]
  - RHEUMATIC FEVER [None]
  - ARTERIOSCLEROSIS [None]
  - CHEST PAIN [None]
  - MELAENA [None]
  - OSTEOPENIA [None]
  - NECK PAIN [None]
  - WHEEZING [None]
  - PLATELET DISORDER [None]
  - ILL-DEFINED DISORDER [None]
  - HIATUS HERNIA [None]
  - COAGULOPATHY [None]
  - CARDIOMYOPATHY [None]
  - EPIGASTRIC DISCOMFORT [None]
  - AORTIC STENOSIS [None]
  - BRAIN NATRIURETIC PEPTIDE ABNORMAL [None]
